FAERS Safety Report 7576639-1 (Version None)
Quarter: 2011Q2

REPORT INFORMATION
  Report Type: 
  Country: None (occurrence: None)
  Receive Date: 20110628
  Receipt Date: 20110120
  Transmission Date: 20111010
  Serious: Yes (Hospitalization, Other)
  Sender: FDA-Public Use
  Company Number: US-BAYER-201034478NA

PATIENT
  Sex: Female
  Weight: 64.853 kg

DRUGS (17)
  1. ORTHO TRI-CYCLEN [Concomitant]
     Indication: CONTRACEPTION
     Dosage: UNK
     Dates: start: 20040401, end: 20060101
  2. CEPHALEXIN [Concomitant]
  3. PHENERGAN HCL [Concomitant]
     Dosage: UNK
     Dates: start: 20091001
  4. IBUPROFEN [Concomitant]
  5. ZOFRAN [Concomitant]
     Dosage: UNK
     Dates: start: 20091001
  6. LORTAB [Concomitant]
     Dosage: UNK
     Dates: start: 20091001
  7. TORADOL [Concomitant]
     Dosage: UNK
     Dates: start: 20090901
  8. AMOXICILLIN [Concomitant]
  9. KEPPRA [Concomitant]
     Dosage: 500 MG, BID
  10. YAZ [Suspect]
     Indication: MENOMETRORRHAGIA
     Dosage: UNK
     Dates: start: 20080101, end: 20090101
  11. ORTHO TRI-CYCLEN [Concomitant]
     Dosage: UNK
     Dates: start: 20100101
  12. DEMEROL [Concomitant]
     Dosage: UNK
     Dates: start: 20090901
  13. CLARITIN [Concomitant]
     Dosage: 10 MG, QD
  14. YAZ [Suspect]
     Indication: CONTRACEPTION
     Dosage: 1 TAB DAILY
     Route: 048
     Dates: start: 20060101, end: 20100101
  15. RESTORIL [Concomitant]
     Indication: MENSTRUATION IRREGULAR
     Dosage: UNK
  16. COLLAGEN [Concomitant]
  17. CIPROFLOXACIN HCL [Concomitant]

REACTIONS (7)
  - ABDOMINAL TENDERNESS [None]
  - CHOLELITHIASIS [None]
  - CHOLECYSTITIS CHRONIC [None]
  - BACK PAIN [None]
  - NAUSEA [None]
  - MENTAL DISORDER [None]
  - ABDOMINAL PAIN UPPER [None]
